FAERS Safety Report 18362349 (Version 1)
Quarter: 2020Q4

REPORT INFORMATION
  Report Type: Spontaneous
  Country: US (occurrence: US)
  Receive Date: 20201009
  Receipt Date: 20201009
  Transmission Date: 20210114
  Serious: No
  Sender: FDA-Public Use
  Company Number: US-ASTRAZENECA-2020SF04015

PATIENT
  Age: 49 Year
  Sex: Male
  Weight: 109.8 kg

DRUGS (4)
  1. ROSUVASTATIN. [Suspect]
     Active Substance: ROSUVASTATIN
     Route: 048
  2. LISIN/HCTZ [Concomitant]
     Indication: BLOOD PRESSURE MEASUREMENT
  3. PIOGLIT [Concomitant]
     Active Substance: PIOGLITAZONE HYDROCHLORIDE
  4. BYDUREON [Suspect]
     Active Substance: EXENATIDE
     Indication: TYPE 2 DIABETES MELLITUS
     Route: 058
     Dates: start: 2020

REACTIONS (3)
  - Skin burning sensation [Unknown]
  - Injection site mass [Unknown]
  - Skin mass [Recovering/Resolving]
